FAERS Safety Report 8502854-6 (Version None)
Quarter: 2012Q3

REPORT INFORMATION
  Report Type: 
  Country: None (occurrence: None)
  Receive Date: 20120705
  Receipt Date: 20120705
  Transmission Date: 20120928
  Serious: No
  Sender: FDA-Public Use
  Company Number: None

PATIENT
  Age: 67 Year
  Sex: Male

DRUGS (2)
  1. RIBASPHERE [Suspect]
     Indication: HEPATITIS C
     Dosage: 400 MG Q AM, 600 MG Q PM PO
     Route: 048
  2. INCIVEK [Suspect]
     Indication: HEPATITIS C
     Dosage: 750MG TID Q8H PO
     Route: 048

REACTIONS (4)
  - VOMITING [None]
  - MUSCULOSKELETAL DISCOMFORT [None]
  - HYPOAESTHESIA [None]
  - DYSPNOEA [None]
